FAERS Safety Report 20695582 (Version 1)
Quarter: 2022Q2

REPORT INFORMATION
  Report Type: Spontaneous
  Country: US (occurrence: US)
  Receive Date: 20220411
  Receipt Date: 20220411
  Transmission Date: 20220720
  Serious: No
  Sender: FDA-Public Use
  Company Number: US-PFIZER INC-202100930734

PATIENT
  Age: 63 Year
  Sex: Female

DRUGS (1)
  1. CHANTIX [Suspect]
     Active Substance: VARENICLINE TARTRATE
     Dosage: 1 MG, 2X/DAY, 1MG TABLET, TAKE ONE TABLET BY MOUTH TWICE DAILY AS DIRECTED
     Route: 048

REACTIONS (3)
  - Eating disorder [Unknown]
  - Product use issue [Unknown]
  - Off label use [Unknown]
